FAERS Safety Report 9093642 (Version 2)
Quarter: 2013Q1

REPORT INFORMATION
  Report Type: Spontaneous
  Country: US (occurrence: None)
  Receive Date: 20130122
  Receipt Date: 20130122
  Transmission Date: 20140127
  Serious: Yes (Death)
  Sender: FDA-Public Use
  Company Number: 1553065

PATIENT
  Age: 54 Year
  Sex: Male

DRUGS (5)
  1. DIAZEPAM [Suspect]
     Dosage: NOT REPORTED
  2. MORPHINE SULPHATE [Suspect]
     Dosage: NOT REPORTED
  3. FLUOXETINE [Suspect]
     Dosage: NOT REPORTED
  4. ACETAMINOPHEN W/HYDROCODONE [Suspect]
     Dosage: NOT REPORTED
  5. ALPRAZOLAM [Suspect]
     Dosage: NOT REPORTED

REACTIONS (2)
  - Drug abuse [None]
  - Toxicity to various agents [None]
